FAERS Safety Report 7772704-4 (Version None)
Quarter: 2011Q3

REPORT INFORMATION
  Report Type: 
  Country: None (occurrence: None)
  Receive Date: 20110922
  Receipt Date: 20100816
  Transmission Date: 20111222
  Serious: No
  Sender: FDA-Public Use
  Company Number: US-ASTRAZENECA-2007UW01750

PATIENT
  Age: 53 Year
  Sex: Male
  Weight: 147.4 kg

DRUGS (15)
  1. PRILOSEC [Concomitant]
     Route: 048
     Dates: start: 20011015
  2. DEPAKOTE [Concomitant]
     Route: 048
     Dates: start: 20011015
  3. HALDOL [Concomitant]
     Dosage: 10 MG
     Dates: start: 19990101, end: 20020101
  4. SEROQUEL [Suspect]
     Indication: BIPOLAR DISORDER
     Route: 048
     Dates: start: 20010101, end: 20031114
  5. RISPERDAL [Concomitant]
     Indication: BIPOLAR DISORDER
     Dosage: UNKNOWN DOSE DURING 1997-1999;  1-4 MG DURING OCTOBER 2001 TO JANUARY 2002.
     Dates: start: 19970101, end: 20020101
  6. PAXIL [Concomitant]
     Dosage: 20 MG
     Dates: start: 19990101
  7. RISPERDAL [Concomitant]
     Route: 048
     Dates: start: 20011017
  8. TRAZODONE HYDROCHLORIDE [Concomitant]
     Route: 048
     Dates: start: 20011015
  9. WELLBUTRIN [Concomitant]
     Route: 048
     Dates: start: 20011017
  10. SEROQUEL [Suspect]
     Route: 048
     Dates: start: 20010201, end: 20031101
  11. SEROQUEL [Suspect]
     Route: 048
     Dates: start: 20020816
  12. RISPERDAL [Concomitant]
     Dosage: 1-4 MG
     Dates: start: 20011001, end: 20011201
  13. TRAZODONE HYDROCHLORIDE [Concomitant]
     Indication: BIPOLAR DISORDER
     Dosage: 50-100 MG
     Dates: start: 19990101
  14. DEPAKOTE [Concomitant]
     Dosage: 1000 MG
     Dates: start: 19990101
  15. SINEQUAN [Concomitant]
     Dosage: 150 MG
     Dates: start: 19990101

REACTIONS (2)
  - OBESITY [None]
  - TYPE 2 DIABETES MELLITUS [None]
